FAERS Safety Report 24730344 (Version 1)
Quarter: 2024Q4

REPORT INFORMATION
  Report Type: Spontaneous
  Country: CA (occurrence: CA)
  Receive Date: 20241213
  Receipt Date: 20241213
  Transmission Date: 20250115
  Serious: Yes (Life-Threatening, Hospitalization, Other)
  Sender: BOEHRINGER INGELHEIM
  Company Number: CA-BoehringerIngelheim-2024-BI-068222

PATIENT
  Age: 66 Year
  Sex: Female
  Weight: 85 kg

DRUGS (25)
  1. EMPAGLIFLOZIN [Suspect]
     Active Substance: EMPAGLIFLOZIN
     Indication: Blood glucose increased
     Route: 048
  2. RITUXIMAB [Suspect]
     Active Substance: RITUXIMAB
     Indication: Myositis
     Dosage: 1 EVERY 15 DAYS
  3. PREDNISONE [Suspect]
     Active Substance: PREDNISONE
     Indication: Myositis
  4. SEMAGLUTIDE [Suspect]
     Active Substance: SEMAGLUTIDE
     Indication: Diabetes mellitus
  5. OZEMPIC [Suspect]
     Active Substance: SEMAGLUTIDE
     Indication: Diabetes mellitus
     Route: 058
  6. ACETAMINOPHEN [Concomitant]
     Active Substance: ACETAMINOPHEN
     Indication: Premedication
     Route: 048
  7. BENADRYL [Concomitant]
     Active Substance: DIPHENHYDRAMINE HYDROCHLORIDE
     Indication: Premedication
     Route: 048
  8. CALCIUM [Concomitant]
     Active Substance: CALCIUM
     Indication: Product used for unknown indication
  9. FOLIC ACID [Concomitant]
     Active Substance: FOLIC ACID
     Indication: Product used for unknown indication
  10. METHOTREXATE [Concomitant]
     Active Substance: METHOTREXATE
     Indication: Product used for unknown indication
     Route: 048
  11. METHYLPREDNISOLONE SODIUM SUCCINATE [Concomitant]
     Active Substance: METHYLPREDNISOLONE SODIUM SUCCINATE
     Indication: Premedication
     Route: 042
  12. NADOLOL [Concomitant]
     Active Substance: NADOLOL
     Indication: Product used for unknown indication
  13. RAMIPRIL [Concomitant]
     Active Substance: RAMIPRIL
     Indication: Product used for unknown indication
  14. RISEDRONATE SODIUM [Concomitant]
     Active Substance: RISEDRONATE SODIUM
     Indication: Product used for unknown indication
  15. TYLENOL [Concomitant]
     Active Substance: ACETAMINOPHEN
     Indication: Premedication
     Route: 048
  16. VITAMIN D3 [Concomitant]
     Active Substance: CHOLECALCIFEROL
     Indication: Product used for unknown indication
  17. VITAMIN D3 [Concomitant]
     Active Substance: CHOLECALCIFEROL
     Indication: Product used for unknown indication
  18. ZANTAC [Concomitant]
     Active Substance: RANITIDINE HYDROCHLORIDE
     Indication: Product used for unknown indication
  19. ASPIRIN [Concomitant]
     Active Substance: ASPIRIN
     Indication: Product used for unknown indication
     Route: 048
  20. BENADRYL [Concomitant]
     Active Substance: DIPHENHYDRAMINE HYDROCHLORIDE
     Indication: Premedication
  21. HUMALOG [Concomitant]
     Active Substance: INSULIN LISPRO
     Indication: Product used for unknown indication
  22. LEVEMIR [Concomitant]
     Active Substance: INSULIN DETEMIR
     Indication: Product used for unknown indication
     Route: 058
  23. PAROXETINE [Concomitant]
     Active Substance: PAROXETINE
     Indication: Product used for unknown indication
  24. ROSUVASTATIN [Concomitant]
     Active Substance: ROSUVASTATIN
     Indication: Product used for unknown indication
  25. RISEDRONATE SODIUM [Concomitant]
     Active Substance: RISEDRONATE SODIUM
     Indication: Product used for unknown indication
     Route: 065

REACTIONS (13)
  - Diabetic ketoacidosis [Recovered/Resolved]
  - Aortic arteriosclerosis [Recovered/Resolved]
  - Blood pressure diastolic abnormal [Recovered/Resolved]
  - Blood pressure diastolic decreased [Recovered/Resolved]
  - Blood pressure systolic increased [Recovered/Resolved]
  - Oxygen saturation decreased [Recovered/Resolved]
  - Type 2 diabetes mellitus [Recovered/Resolved]
  - Weight increased [Recovered/Resolved]
  - Blood glucose increased [Recovered/Resolved]
  - Blood pressure fluctuation [Recovered/Resolved]
  - Blood pressure increased [Recovered/Resolved]
  - Weight decreased [Recovered/Resolved]
  - Intentional product use issue [Unknown]
